FAERS Safety Report 24226314 (Version 2)
Quarter: 2024Q3

REPORT INFORMATION
  Report Type: Spontaneous
  Country: US (occurrence: US)
  Receive Date: 20240820
  Receipt Date: 20240822
  Transmission Date: 20241017
  Serious: Yes (Other)
  Sender: SANOFI AVENTIS
  Company Number: US-BIOGEN-2018BI00655499

PATIENT
  Age: 45 Year
  Sex: Female

DRUGS (14)
  1. AUBAGIO [Suspect]
     Active Substance: TERIFLUNOMIDE
     Indication: Product used for unknown indication
     Dosage: UNK
     Route: 050
  2. AMPYRA [Suspect]
     Active Substance: DALFAMPRIDINE
     Indication: Multiple sclerosis
     Dosage: 20 MG, QD
     Route: 050
     Dates: start: 201410
  3. AMPYRA [Suspect]
     Active Substance: DALFAMPRIDINE
     Dosage: 20 MG, QD
     Route: 050
     Dates: start: 20151027
  4. FUROSEMIDE [Concomitant]
     Active Substance: FUROSEMIDE
     Indication: Product used for unknown indication
     Dosage: UNK
     Route: 050
  5. MEDROL [Concomitant]
     Active Substance: METHYLPREDNISOLONE
     Indication: Product used for unknown indication
     Dosage: 4 MG, QW
     Route: 050
  6. INTEGRA [ASCORBIC ACID;FERROUS FUMARATE;IRON POLYSACCHARIDE COMPLEX;NI [Concomitant]
     Indication: Product used for unknown indication
     Dosage: 62.5-62.5-40-3MG ONCE A DAY
     Route: 050
  7. GABAPENTIN [Concomitant]
     Active Substance: GABAPENTIN
     Indication: Product used for unknown indication
     Dosage: UNK
     Route: 050
  8. VITAMIN D3 [Concomitant]
     Active Substance: CHOLECALCIFEROL
     Indication: Product used for unknown indication
     Dosage: 5000 IU, QW
     Route: 050
  9. VITAMIN B12 [Concomitant]
     Active Substance: CYANOCOBALAMIN
     Indication: Product used for unknown indication
     Dosage: 500 UG (500 MICROGRAM AS DIRECTED)
     Route: 050
  10. LOW-OGESTREL [Concomitant]
     Active Substance: ETHINYL ESTRADIOL\NORGESTREL
     Indication: Product used for unknown indication
     Dosage: UNK
     Route: 050
  11. BACLOFEN [Concomitant]
     Active Substance: BACLOFEN
     Indication: Product used for unknown indication
     Dosage: UNK
     Route: 050
  12. ATENOLOL [Concomitant]
     Active Substance: ATENOLOL
     Indication: Product used for unknown indication
     Dosage: UNK
     Route: 050
  13. PANTOPRAZOLE SODIUM [Concomitant]
     Active Substance: PANTOPRAZOLE SODIUM
     Indication: Product used for unknown indication
     Dosage: 40 MG
     Route: 050
  14. MECLIZINE HYDROCHLORIDE [Concomitant]
     Active Substance: MECLIZINE HYDROCHLORIDE
     Indication: Dizziness
     Dosage: 50 MG, QD (2 SEPARATE DOSAGES 1D)
     Route: 050

REACTIONS (32)
  - Paresis [Unknown]
  - Meningioma [Unknown]
  - Coordination abnormal [Unknown]
  - White matter lesion [Unknown]
  - Relapsing-remitting multiple sclerosis [Unknown]
  - Therapy cessation [Unknown]
  - Gait disturbance [Unknown]
  - Increased tendency to bruise [Unknown]
  - Cyclothymic disorder [Unknown]
  - Flatulence [Unknown]
  - Decreased vibratory sense [Unknown]
  - Asthenia [Unknown]
  - Sensory disturbance [Unknown]
  - Urinary incontinence [Unknown]
  - Fatigue [Not Recovered/Not Resolved]
  - Obesity [Unknown]
  - Balance disorder [Unknown]
  - Anaemia [Unknown]
  - Movement disorder [Unknown]
  - Muscle spasticity [Unknown]
  - Temperature intolerance [Unknown]
  - Anaemia vitamin B12 deficiency [Unknown]
  - Oedema peripheral [Not Recovered/Not Resolved]
  - Hypertonia [Unknown]
  - Reflexes abnormal [Unknown]
  - Pain in extremity [Unknown]
  - Skin ulcer [Unknown]
  - Dizziness [Unknown]
  - Anal incontinence [Unknown]
  - Motor dysfunction [Unknown]
  - Alopecia [Unknown]
  - Headache [Unknown]

NARRATIVE: CASE EVENT DATE: 20181005
